FAERS Safety Report 5126963-7 (Version None)
Quarter: 2006Q4

REPORT INFORMATION
  Report Type: 
  Country: None (occurrence: None)
  Receive Date: 20061013
  Receipt Date: 20061006
  Transmission Date: 20070319
  Serious: Yes (Hospitalization, Other)
  Sender: FDA-Public Use
  Company Number: US-MERCK-0610USA05048

PATIENT
  Age: 79 Year
  Sex: Female

DRUGS (9)
  1. FOSAMAX [Suspect]
     Indication: OSTEOPOROSIS
     Route: 048
     Dates: start: 20010101, end: 20060901
  2. DIOVAN [Concomitant]
     Route: 065
  3. ZANTAC [Concomitant]
     Route: 065
  4. XANAX [Concomitant]
     Route: 065
  5. ATENOLOL [Concomitant]
     Route: 065
  6. ASPIRIN [Concomitant]
     Route: 065
  7. PLAVIX [Concomitant]
     Route: 065
  8. PRAVACHOL [Concomitant]
     Route: 065
  9. MULTI-VITAMINS [Concomitant]
     Route: 065

REACTIONS (4)
  - CORONARY ARTERIAL STENT INSERTION [None]
  - CORONARY ARTERY DISEASE [None]
  - FEELING HOT [None]
  - MYOCARDIAL INFARCTION [None]
